FAERS Safety Report 17094654 (Version 6)
Quarter: 2020Q2

REPORT INFORMATION
  Report Type: Report from Study
  Country: US (occurrence: US)
  Receive Date: 20191130
  Receipt Date: 20200629
  Transmission Date: 20200713
  Serious: Yes (Hospitalization, Other)
  Sender: FDA-Public Use
  Company Number: NVSC2019US053443

PATIENT
  Sex: Female

DRUGS (1)
  1. GILENYA [Suspect]
     Active Substance: FINGOLIMOD HYDROCHLORIDE
     Indication: MULTIPLE SCLEROSIS
     Dosage: 0.5 MG, QD
     Route: 048
     Dates: start: 20190925, end: 20200603

REACTIONS (13)
  - Herpes zoster [Recovering/Resolving]
  - Rash [Recovering/Resolving]
  - Hypoaesthesia [Unknown]
  - Pruritus [Unknown]
  - Balance disorder [Unknown]
  - Swelling [Unknown]
  - Weight decreased [Unknown]
  - Diplopia [Unknown]
  - Vision blurred [Unknown]
  - Pain [Unknown]
  - Diabetes mellitus [Unknown]
  - Pain in extremity [Recovering/Resolving]
  - Seizure [Recovering/Resolving]
